FAERS Safety Report 6976533-0 (Version None)
Quarter: 2010Q3

REPORT INFORMATION
  Report Type: 
  Country: None (occurrence: None)
  Receive Date: 20100910
  Receipt Date: 20100806
  Transmission Date: 20110219
  Serious: No
  Sender: FDA-Public Use
  Company Number: US-PFIZER INC-2010104605

PATIENT
  Sex: Female

DRUGS (2)
  1. NORVASC [Suspect]
     Dosage: 10 MG, DAILY
     Route: 048
     Dates: start: 20091119
  2. VERAPAMIL HYDROCHLORIDE [Concomitant]
     Dosage: UNK

REACTIONS (9)
  - CHAPPED LIPS [None]
  - COUGH [None]
  - HEART RATE INCREASED [None]
  - INSOMNIA [None]
  - JOINT SWELLING [None]
  - LIP EXFOLIATION [None]
  - LIP PAIN [None]
  - LIP SWELLING [None]
  - OEDEMA PERIPHERAL [None]
